FAERS Safety Report 11665636 (Version 3)
Quarter: 2017Q1

REPORT INFORMATION
  Report Type: Report from Study
  Country: US (occurrence: US)
  Receive Date: 20151027
  Receipt Date: 20170214
  Transmission Date: 20170428
  Serious: Yes (Other)
  Sender: FDA-Public Use
  Company Number: PHEH2015US021192

PATIENT
  Sex: Female

DRUGS (1)
  1. GLEEVEC [Suspect]
     Active Substance: IMATINIB MESYLATE
     Indication: CHRONIC MYELOID LEUKAEMIA
     Dosage: 400 MG, QD
     Route: 048

REACTIONS (8)
  - Haemoglobin decreased [Unknown]
  - Platelet count abnormal [Unknown]
  - Glaucoma [Unknown]
  - Drug intolerance [Unknown]
  - Hypersensitivity [Unknown]
  - Asthenia [Unknown]
  - Macular degeneration [Unknown]
  - Nausea [Unknown]
